FAERS Safety Report 6642670-3 (Version None)
Quarter: 2010Q1

REPORT INFORMATION
  Report Type: 
  Country: None (occurrence: None)
  Receive Date: 20100319
  Receipt Date: 20100310
  Transmission Date: 20100710
  Serious: Yes (Hospitalization)
  Sender: FDA-Public Use
  Company Number: US-BRISTOL-MYERS SQUIBB COMPANY-15015985

PATIENT
  Age: 60 Year
  Sex: Male
  Weight: 58 kg

DRUGS (7)
  1. CETUXIMAB [Suspect]
     Indication: NON-SMALL CELL LUNG CANCER
     Dosage: 56DAYS;1MAR2010:8TH INF
     Route: 042
     Dates: start: 20100104, end: 20100301
  2. CARBOPLATIN [Suspect]
     Indication: NON-SMALL CELL LUNG CANCER
     Dosage: 50DAYS;3RD INF:23FEB2010
     Route: 042
     Dates: start: 20100104, end: 20100223
  3. GEMCITABINE HCL [Suspect]
     Indication: NON-SMALL CELL LUNG CANCER
     Dosage: 56DAYS
     Route: 042
     Dates: start: 20100104, end: 20100301
  4. MORPHINE [Concomitant]
     Indication: PAIN
     Route: 065
  5. RITALIN [Concomitant]
     Route: 065
  6. MEGACE [Concomitant]
     Route: 065
  7. ARIXTRA [Concomitant]
     Indication: DEEP VEIN THROMBOSIS
     Route: 065

REACTIONS (1)
  - PLEURAL EFFUSION [None]
